FAERS Safety Report 4523143-0 (Version None)
Quarter: 2004Q4

REPORT INFORMATION
  Report Type: 
  Country: None (occurrence: None)
  Receive Date: 20041206
  Receipt Date: 20041206
  Transmission Date: 20050328
  Serious: Yes (Other)
  Sender: FDA-Public Use
  Company Number: None

PATIENT
  Age: 66 Year
  Sex: Male
  Weight: 98.4306 kg

DRUGS (2)
  1. ZOCOR [Suspect]
     Indication: HYPERLIPIDAEMIA
     Dosage: 1/2 PILL QD
     Route: 048
     Dates: start: 20041129
  2. ZOCOR [Suspect]
     Indication: HYPERTENSION
     Dosage: 1/2 PILL QD
     Route: 048
     Dates: start: 20041129

REACTIONS (1)
  - HERPES ZOSTER [None]
